FAERS Safety Report 21160738 (Version 1)
Quarter: 2022Q3

REPORT INFORMATION
  Report Type: Spontaneous
  Country: US (occurrence: None)
  Receive Date: 20220801
  Receipt Date: 20220801
  Transmission Date: 20221027
  Serious: Yes (Other)
  Sender: FDA-Public Use
  Company Number: None

PATIENT
  Sex: 0

DRUGS (2)
  1. ROSUVASTATIN [Suspect]
     Active Substance: ROSUVASTATIN
  2. ATORVASTATIN [Suspect]
     Active Substance: ATORVASTATIN

REACTIONS (4)
  - Myalgia [None]
  - Urticaria [None]
  - Pruritus [None]
  - Rash [None]
